FAERS Safety Report 8228966-2 (Version None)
Quarter: 2012Q1

REPORT INFORMATION
  Report Type: 
  Country: None (occurrence: None)
  Receive Date: 20120322
  Receipt Date: 20120316
  Transmission Date: 20120608
  Serious: Yes (Hospitalization, Other)
  Sender: FDA-Public Use
  Company Number: US-BAYER-201041657NA

PATIENT
  Age: 21 Year
  Sex: Female
  Weight: 55.782 kg

DRUGS (2)
  1. YAZ [Suspect]
     Indication: PREMENSTRUAL SYNDROME
     Route: 048
     Dates: start: 20060801, end: 20090701
  2. YAZ [Suspect]
     Indication: DYSMENORRHOEA

REACTIONS (6)
  - CEREBROVASCULAR ACCIDENT [None]
  - FEAR OF DISEASE [None]
  - APHASIA [None]
  - HYPOAESTHESIA [None]
  - CEREBRAL INFARCTION [None]
  - VIITH NERVE PARALYSIS [None]
